FAERS Safety Report 15150926 (Version 1)
Quarter: 2018Q4

REPORT INFORMATION
  Report Type: Spontaneous
  Country: US (occurrence: US)
  Receive Date: 20180716
  Receipt Date: 20180716
  Transmission Date: 20190204
  Serious: No
  Sender: FDA-Public Use
  Company Number: US-SA-2018SA177813

PATIENT
  Age: 38 Year
  Sex: Male

DRUGS (3)
  1. ADVIL 12HOUR [Suspect]
     Active Substance: IBUPROFEN
     Dosage: UNK UNK, UNK
     Route: 065
  2. LOVENOX [Suspect]
     Active Substance: ENOXAPARIN SODIUM
     Dosage: 40 MG, BID
     Route: 065
     Dates: start: 20170615
  3. TYLENOL 8HR [Concomitant]
     Active Substance: ACETAMINOPHEN
     Dosage: UNK UNK, UNK
     Route: 065

REACTIONS (2)
  - Ankle fracture [Unknown]
  - Injection site haemorrhage [Recovered/Resolved]
